FAERS Safety Report 18429217 (Version 2)
Quarter: 2020Q4

REPORT INFORMATION
  Report Type: Spontaneous
  Country: US (occurrence: US)
  Receive Date: 20201026
  Receipt Date: 20201112
  Transmission Date: 20210114
  Serious: Yes (Other)
  Sender: FDA-Public Use
  Company Number: US-BAYER-2020-222997

PATIENT
  Age: 56 Year
  Sex: Female

DRUGS (18)
  1. NUBEQA [Suspect]
     Active Substance: DAROLUTAMIDE
     Indication: PROSTATE CANCER
     Dosage: 600 MG, BID
     Route: 048
     Dates: start: 20200709, end: 20201105
  2. ASPIRIN [ACETYLSALICYLIC ACID] [Concomitant]
     Active Substance: ASPIRIN
  3. LUPRON DEPOT [Concomitant]
     Active Substance: LEUPROLIDE ACETATE
  4. PLAVIX [Concomitant]
     Active Substance: CLOPIDOGREL BISULFATE
  5. CLONIDINE HCL [Concomitant]
     Active Substance: CLONIDINE HYDROCHLORIDE
  6. PREDNISONE. [Concomitant]
     Active Substance: PREDNISONE
  7. LISINOPRIL. [Concomitant]
     Active Substance: LISINOPRIL
  8. ERGOCALCIFEROL. [Concomitant]
     Active Substance: ERGOCALCIFEROL
  9. LUNESTA [Concomitant]
     Active Substance: ESZOPICLONE
  10. RANITIDINE. [Concomitant]
     Active Substance: RANITIDINE
  11. PROTONIX [OMEPRAZOLE] [Concomitant]
     Active Substance: OMEPRAZOLE
  12. METFORMIN [Concomitant]
     Active Substance: METFORMIN HYDROCHLORIDE
  13. OMEPRAZOLE. [Concomitant]
     Active Substance: OMEPRAZOLE
  14. ATORVASTATIN [Concomitant]
     Active Substance: ATORVASTATIN
  15. ELIGARD [Concomitant]
     Active Substance: LEUPROLIDE ACETATE
  16. LECITHIN [Concomitant]
     Active Substance: LECITHIN
  17. ASCORBIC ACID. [Concomitant]
     Active Substance: ASCORBIC ACID
  18. MORPHINE SULFATE PDRX [Concomitant]

REACTIONS (6)
  - Pneumonia [Not Recovered/Not Resolved]
  - Dyspnoea exertional [Not Recovered/Not Resolved]
  - Abdominal pain upper [Not Recovered/Not Resolved]
  - Diarrhoea [Recovered/Resolved]
  - Cough [Not Recovered/Not Resolved]
  - Wrong technique in product usage process [None]

NARRATIVE: CASE EVENT DATE: 20201008
